FAERS Safety Report 15813931 (Version 1)
Quarter: 2018Q4

REPORT INFORMATION
  Report Type: Spontaneous
  Country: US (occurrence: US)
  Receive Date: 20181217
  Receipt Date: 20181217
  Transmission Date: 20190205
  Serious: Yes (Death)
  Sender: FDA-Public Use
  Company Number: None

PATIENT
  Age: 37 Year
  Sex: Male
  Weight: 167 kg

DRUGS (2)
  1. PALIPERIDONE. [Suspect]
     Active Substance: PALIPERIDONE
     Indication: DEPRESSION
  2. TREVICTA [Suspect]
     Active Substance: PALIPERIDONE PALMITATE
     Indication: PSYCHOTIC DISORDER

REACTIONS (9)
  - Dizziness [None]
  - Eye disorder [None]
  - Dyspnoea [None]
  - Malaise [None]
  - Cerebrovascular accident [None]
  - Venous thrombosis [None]
  - Visual impairment [None]
  - Myocardial infarction [None]
  - Fatigue [None]

NARRATIVE: CASE EVENT DATE: 201711
